FAERS Safety Report 6993719-X (Version None)
Quarter: 2010Q3

REPORT INFORMATION
  Report Type: 
  Country: None (occurrence: None)
  Receive Date: 20100917
  Receipt Date: 20100908
  Transmission Date: 20110219
  Serious: Yes (Other)
  Sender: FDA-Public Use
  Company Number: US-AMGEN-QUU433995

PATIENT
  Sex: Male
  Weight: 122.6 kg

DRUGS (3)
  1. NPLATE [Suspect]
     Indication: IDIOPATHIC THROMBOCYTOPENIC PURPURA
     Route: 058
     Dates: start: 20100525, end: 20100604
  2. CORTICOSTEROIDS [Concomitant]
  3. RITUXAN [Concomitant]

REACTIONS (1)
  - PLATELET COUNT INCREASED [None]
